FAERS Safety Report 8970804 (Version 1)
Quarter: 2012Q4

REPORT INFORMATION
  Report Type: 
  Country: DK (occurrence: GB)
  Receive Date: 20121218
  Receipt Date: 20121218
  Transmission Date: 20130627
  Serious: Yes (Other)
  Sender: FDA-Public Use
  Company Number: GB-FRI-1000041069

PATIENT
  Age: 43 Year
  Sex: Female
  Weight: 68 kg

DRUGS (3)
  1. CITALOPRAM [Suspect]
     Indication: ANXIETY
     Dosage: 10 mg
     Route: 048
     Dates: start: 20121021, end: 20121023
  2. BECLOMETASONE [Concomitant]
     Indication: ASTHMA
     Dosage: 2 DF
     Route: 055
     Dates: start: 2008
  3. VENTOLIN [Concomitant]
     Indication: ASTHMA
     Route: 055
     Dates: start: 2002

REACTIONS (1)
  - Angle closure glaucoma [Not Recovered/Not Resolved]
